FAERS Safety Report 6288064-4 (Version None)
Quarter: 2009Q3

REPORT INFORMATION
  Report Type: 
  Country: None (occurrence: None)
  Receive Date: 20090729
  Receipt Date: 20090717
  Transmission Date: 20100115
  Serious: Yes (Hospitalization)
  Sender: FDA-Public Use
  Company Number: PHHY2009IT29488

PATIENT

DRUGS (2)
  1. EXJADE [Suspect]
     Dosage: 15 MG/KG/DAY
  2. INTERFERON ALFA [Suspect]

REACTIONS (1)
  - HAEMOLYSIS [None]
